FAERS Safety Report 7623798-8 (Version None)
Quarter: 2011Q3

REPORT INFORMATION
  Report Type: 
  Country: None (occurrence: None)
  Receive Date: 20110719
  Receipt Date: 20110719
  Transmission Date: 20111222
  Serious: Yes (Hospitalization)
  Sender: FDA-Public Use
  Company Number: None

PATIENT
  Sex: Male
  Weight: 90 kg

DRUGS (1)
  1. GENTAMICIN [Suspect]
     Indication: URINARY TRACT INFECTION
     Dosage: 180 MG EVERY 12 HOURS INTRAVENOUSLY
     Route: 042
     Dates: start: 20110617, end: 20110618

REACTIONS (3)
  - EAR DISCOMFORT [None]
  - NAUSEA [None]
  - VOMITING [None]
